FAERS Safety Report 26167562 (Version 1)
Quarter: 2025Q4

REPORT INFORMATION
  Report Type: Report from Study
  Country: EU (occurrence: EU)
  Receive Date: 20251217
  Receipt Date: 20251217
  Transmission Date: 20260117
  Serious: Yes (Other)
  Sender: ABBVIE
  Company Number: EU-ABBVIE-6591933

PATIENT
  Age: 49 Year
  Sex: Female
  Weight: 85 kg

DRUGS (7)
  1. UPADACITINIB [Suspect]
     Active Substance: UPADACITINIB
     Indication: Psoriatic arthropathy
     Route: 048
     Dates: start: 202511
  2. UPADACITINIB [Suspect]
     Active Substance: UPADACITINIB
     Indication: Psoriatic arthropathy
     Route: 048
     Dates: start: 20240308, end: 202503
  3. UPADACITINIB [Suspect]
     Active Substance: UPADACITINIB
     Indication: Psoriatic arthropathy
     Route: 048
     Dates: start: 202503, end: 20251001
  4. METHOTREXATE [Concomitant]
     Active Substance: METHOTREXATE
     Indication: Psoriatic arthropathy
     Route: 048
     Dates: start: 20220101
  5. AMOXICILLIN [Concomitant]
     Active Substance: AMOXICILLIN
     Indication: Paronychia
     Route: 048
     Dates: start: 202410, end: 20241102
  6. AZITHROMYCIN DIHYDRATE [Concomitant]
     Active Substance: AZITHROMYCIN DIHYDRATE
     Indication: Bronchitis
     Route: 048
     Dates: start: 20240915, end: 202410
  7. PREDNISOLONE [Concomitant]
     Active Substance: PREDNISOLONE
     Indication: Bronchitis
     Route: 048
     Dates: start: 20240915, end: 202410

REACTIONS (1)
  - Umbilical hernia repair [Recovered/Resolved]

NARRATIVE: CASE EVENT DATE: 20251001
